FAERS Safety Report 8769352 (Version 2)
Quarter: 2012Q4

REPORT INFORMATION
  Report Type: 
  Country: US (occurrence: US)
  Receive Date: 20120904
  Receipt Date: 20120920
  Transmission Date: 20130627
  Serious: Yes (Hospitalization, Other)
  Sender: FDA-Public Use
  Company Number: US-PFIZER INC-2012212659

PATIENT
  Age: 63 Year
  Sex: Male

DRUGS (10)
  1. CISPLATIN [Suspect]
     Indication: METASTATIC MALIGNANT MELANOMA
     Dosage: 25 mg/m2, on days 1 through 3, cyclic of 21-day cycle
     Route: 042
  2. CARBOPLATIN [Suspect]
     Indication: METASTATIC MALIGNANT MELANOMA
     Dosage: area under the curve of 5, administered on day 1 of each 21 day cycle
     Dates: start: 201104
  3. IPILIMUMAB [Concomitant]
     Indication: METASTATIC MALIGNANT MELANOMA
     Dosage: 3 mg/kg, UNK
     Route: 065
  4. IMC-20D7S (ANTI-GP75 ANTIBODY) [Concomitant]
     Indication: METASTATIC MALIGNANT MELANOMA
     Dosage: 10 mg/kg, UNK
  5. VINBLASTINE [Concomitant]
     Indication: METASTATIC MALIGNANT MELANOMA
     Dosage: 1.2 mg/m2, on days 1 through 3, cyclic of 21-day cycle
     Route: 042
  6. TEMOZOLOMIDE [Concomitant]
     Indication: METASTATIC MALIGNANT MELANOMA
     Dosage: 150 mg/m2 on days 1 through 5 of 21-day cycle
     Route: 065
  7. TEMOZOLOMIDE [Concomitant]
     Dosage: 75mg/m2, unknown
     Route: 065
  8. PACLITAXEL [Concomitant]
     Indication: METASTATIC MALIGNANT MELANOMA
     Dosage: 175 mg/m2, administered on day 1 of each 21 day cycle
     Route: 065
     Dates: start: 201104
  9. CRESTOR [Concomitant]
     Dosage: 40 mg, UNK
     Route: 065
  10. TOPROL XL [Concomitant]
     Dosage: 150 mg, UNK
     Route: 065

REACTIONS (1)
  - Angina unstable [Recovered/Resolved]
